FAERS Safety Report 4927209-2 (Version None)
Quarter: 2006Q1

REPORT INFORMATION
  Report Type: 
  Country: None (occurrence: None)
  Receive Date: 20060228
  Receipt Date: 20050126
  Transmission Date: 20060701
  Serious: No
  Sender: FDA-Public Use
  Company Number: US-GLAXOSMITHKLINE-A0542457A

PATIENT
  Age: 16 Year
  Sex: Female

DRUGS (6)
  1. IMITREX [Suspect]
     Indication: MIGRAINE
     Route: 058
  2. FLONASE [Concomitant]
  3. SINGULAIR [Concomitant]
  4. UNKNOWN MEDICATION [Concomitant]
  5. LEXAPRO [Concomitant]
  6. CLARINEX [Concomitant]

REACTIONS (1)
  - ABDOMINAL PAIN UPPER [None]
